FAERS Safety Report 8385374-1 (Version None)
Quarter: 2012Q2

REPORT INFORMATION
  Report Type: 
  Country: None (occurrence: None)
  Receive Date: 20120525
  Receipt Date: 20120517
  Transmission Date: 20120825
  Serious: No
  Sender: FDA-Public Use
  Company Number: US-BIOGENIDEC-2012BI017551

PATIENT
  Age: 21 Year
  Sex: Male

DRUGS (1)
  1. TYSABRI [Suspect]
     Indication: MULTIPLE SCLEROSIS
     Route: 042
     Dates: start: 20110825

REACTIONS (9)
  - MUSCULOSKELETAL DISORDER [None]
  - SENSORY DISTURBANCE [None]
  - CHEST DISCOMFORT [None]
  - SWELLING [None]
  - GRAFT COMPLICATION [None]
  - CHEST PAIN [None]
  - BACK PAIN [None]
  - MUSCULAR WEAKNESS [None]
  - AXILLARY PAIN [None]
